FAERS Safety Report 7236683-0 (Version None)
Quarter: 2011Q1

REPORT INFORMATION
  Report Type: 
  Country: None (occurrence: None)
  Receive Date: 20110110
  Receipt Date: 19971223
  Transmission Date: 20110831
  Serious: Yes (Other)
  Sender: FDA-Public Use
  Company Number: LEO-2011-00014

PATIENT
  Sex: Male

DRUGS (1)
  1. INNOHEP [Suspect]
     Indication: DEEP VEIN THROMBOSIS

REACTIONS (6)
  - DRUG INTOLERANCE [None]
  - DYSPNOEA [None]
  - HYPERSENSITIVITY [None]
  - ERYTHEMA [None]
  - THROMBOSIS [None]
  - OEDEMA PERIPHERAL [None]
